FAERS Safety Report 8451322-9 (Version None)
Quarter: 2012Q2

REPORT INFORMATION
  Report Type: 
  Country: None (occurrence: None)
  Receive Date: 20120620
  Receipt Date: 20120223
  Transmission Date: 20120825
  Serious: No
  Sender: FDA-Public Use
  Company Number: US-VERTEX PHARMACEUTICALS INC.-AE-2012-002704

PATIENT
  Sex: Female
  Weight: 68.1 kg

DRUGS (5)
  1. DIOVAN [Concomitant]
     Indication: HYPERTENSION
  2. PEGASYS [Concomitant]
     Indication: HEPATITIS C
     Dates: start: 20120219
  3. RIBAVIRIN [Concomitant]
     Indication: HEPATITIS C
     Route: 048
     Dates: start: 20120219
  4. INCIVEK [Suspect]
     Indication: HEPATITIS C
     Route: 048
     Dates: start: 20120219
  5. VITAMIN D [Concomitant]
     Indication: MEDICAL DIET

REACTIONS (3)
  - ANORECTAL DISCOMFORT [None]
  - ANAL PRURITUS [None]
  - DIARRHOEA [None]
